FAERS Safety Report 13484081 (Version 1)
Quarter: 2017Q2

REPORT INFORMATION
  Report Type: Spontaneous
  Country: GB (occurrence: GB)
  Receive Date: 20170426
  Receipt Date: 20170426
  Transmission Date: 20170830
  Serious: Yes (Hospitalization)
  Sender: FDA-Public Use
  Company Number: GB-ACCORD-050580

PATIENT
  Age: 73 Year
  Sex: Male

DRUGS (13)
  1. LANSOPRAZOLE. [Concomitant]
     Active Substance: LANSOPRAZOLE
  2. ADALAT CC [Concomitant]
     Active Substance: NIFEDIPINE
  3. ACETYLSALICYLIC ACID [Concomitant]
     Active Substance: ASPIRIN
     Dosage: ASPIRIN COATED
  4. VILDAGLIPTIN [Concomitant]
     Active Substance: VILDAGLIPTIN
  5. IRON [Concomitant]
     Active Substance: IRON
  6. FOLIC ACID ACTAVIS UK [Concomitant]
  7. METFORMIN [Concomitant]
     Active Substance: METFORMIN HYDROCHLORIDE
  8. SIMVASTATIN. [Concomitant]
     Active Substance: SIMVASTATIN
  9. RAMIPRIL. [Suspect]
     Active Substance: RAMIPRIL
     Indication: HYPERTENSION
     Route: 048
  10. ALLOPURINOL. [Concomitant]
     Active Substance: ALLOPURINOL
  11. FUROSEMIDE. [Suspect]
     Active Substance: FUROSEMIDE
     Indication: FLUID OVERLOAD
     Route: 048
     Dates: end: 20170403
  12. DOXAZOSIN [Concomitant]
     Active Substance: DOXAZOSIN\DOXAZOSIN MESYLATE
  13. BISOPROLOL [Concomitant]
     Active Substance: BISOPROLOL

REACTIONS (5)
  - Dyspnoea [Unknown]
  - Respiratory rate increased [Unknown]
  - Gastroenteritis [Unknown]
  - Acute kidney injury [Unknown]
  - Malaise [Unknown]

NARRATIVE: CASE EVENT DATE: 20170403
